FAERS Safety Report 20251076 (Version 1)
Quarter: 2021Q4

REPORT INFORMATION
  Report Type: Spontaneous
  Country: US (occurrence: US)
  Receive Date: 20211229
  Receipt Date: 20211229
  Transmission Date: 20220303
  Serious: Yes (Hospitalization)
  Sender: FDA-Public Use
  Company Number: US-BoehringerIngelheim-2021-BI-145900

PATIENT
  Age: 80 Year
  Sex: Male

DRUGS (1)
  1. JARDIANCE [Suspect]
     Active Substance: EMPAGLIFLOZIN
     Indication: Drug therapy
     Route: 048
     Dates: start: 20211020

REACTIONS (2)
  - Cardiac disorder [Unknown]
  - COVID-19 [Recovered/Resolved]

NARRATIVE: CASE EVENT DATE: 20201020
